FAERS Safety Report 5073084-8 (Version None)
Quarter: 2006Q3

REPORT INFORMATION
  Report Type: 
  Country: None (occurrence: None)
  Receive Date: 20060802
  Receipt Date: 20060720
  Transmission Date: 20061208
  Serious: Yes (Other)
  Sender: FDA-Public Use
  Company Number: 2006-BP-08357RO

PATIENT
  Age: 48 Year
  Sex: Male

DRUGS (3)
  1. HYDROMORPHONE HCL [Suspect]
     Indication: BACK PAIN
     Dosage: 41 MG/DAY
  2. MORPHINE [Suspect]
     Indication: BACK PAIN
  3. BUPIVACAINE [Suspect]
     Indication: BACK PAIN

REACTIONS (5)
  - CATHETER RELATED COMPLICATION [None]
  - MASS [None]
  - MENINGIOMA [None]
  - MUSCULAR WEAKNESS [None]
  - URINARY RETENTION [None]
